FAERS Safety Report 11626660 (Version 2)
Quarter: 2015Q4

REPORT INFORMATION
  Report Type: Spontaneous
  Country: US (occurrence: US)
  Receive Date: 20151013
  Receipt Date: 20151223
  Transmission Date: 20160304
  Serious: Yes (Hospitalization)
  Sender: FDA-Public Use
  Company Number: US-BAYER-2015-441379

PATIENT
  Age: 29 Year
  Sex: Female
  Weight: 72.56 kg

DRUGS (1)
  1. MIRENA [Suspect]
     Active Substance: LEVONORGESTREL
     Indication: CONTRACEPTION
     Dosage: 20 MCG/24HR, CONT
     Route: 015
     Dates: start: 20111208, end: 20130104

REACTIONS (12)
  - Ovarian cyst [None]
  - Stress [None]
  - Weight increased [None]
  - Injury [None]
  - Abdominal pain lower [None]
  - Anxiety [None]
  - Device failure [None]
  - Mood swings [None]
  - Device dislocation [None]
  - Medical device pain [None]
  - Emotional distress [None]
  - Psychological trauma [None]

NARRATIVE: CASE EVENT DATE: 201301
